FAERS Safety Report 18595657 (Version 1)
Quarter: 2020Q4

REPORT INFORMATION
  Report Type: Spontaneous
  Country: US (occurrence: US)
  Receive Date: 20201209
  Receipt Date: 20201209
  Transmission Date: 20210114
  Serious: No
  Sender: FDA-Public Use
  Company Number: US-PFIZER INC-2020465926

PATIENT
  Age: 58 Year
  Sex: Female
  Weight: 99.79 kg

DRUGS (3)
  1. IBRANCE [Suspect]
     Active Substance: PALBOCICLIB
     Dosage: 100 MG
     Dates: start: 202003
  2. IBRANCE [Suspect]
     Active Substance: PALBOCICLIB
     Indication: BREAST CANCER STAGE IV
     Dosage: 100 MG, CYCLIC (100MG TABLET ONCE A DAY BY MOUTH FOR 21 DAYS AND THEN 7 DAYS OFF)
     Route: 048
     Dates: start: 201911
  3. LEVOTHYROXINE. [Concomitant]
     Active Substance: LEVOTHYROXINE
     Indication: THYROID DISORDER
     Dosage: 0.112 MG, 1X/DAY (0.112MG TABLET ONCE A DAY BY MOUTH)
     Route: 048

REACTIONS (1)
  - Dysgeusia [Not Recovered/Not Resolved]

NARRATIVE: CASE EVENT DATE: 20201124
